FAERS Safety Report 7969041-1 (Version None)
Quarter: 2011Q4

REPORT INFORMATION
  Report Type: 
  Country: None (occurrence: None)
  Receive Date: 20111209
  Receipt Date: 20111202
  Transmission Date: 20120403
  Serious: Yes (Other)
  Sender: FDA-Public Use
  Company Number: GB-B.I. PHARMACEUTICALS,INC./RIDGEFIELD-2011-BP-27277BP

PATIENT
  Age: 38 Year
  Sex: Female

DRUGS (3)
  1. EPIVIR [Concomitant]
     Indication: ANTIVIRAL TREATMENT
     Route: 048
  2. VIRAMUNE [Suspect]
     Indication: ANTIVIRAL TREATMENT
     Dosage: 400 MG
     Route: 048
  3. ZIAGEN [Concomitant]
     Indication: ANTIVIRAL TREATMENT
     Route: 048

REACTIONS (1)
  - ABORTION SPONTANEOUS [None]
